FAERS Safety Report 23057742 (Version 1)
Quarter: 2023Q4

REPORT INFORMATION
  Report Type: Spontaneous
  Country: US (occurrence: US)
  Receive Date: 20231012
  Receipt Date: 20231012
  Transmission Date: 20240110
  Serious: Yes (Other)
  Sender: FDA-Public Use
  Company Number: US-AMGEN-USASP2023176421

PATIENT

DRUGS (1)
  1. REPATHA [Suspect]
     Active Substance: EVOLOCUMAB
     Indication: Blood cholesterol increased
     Dosage: UNK
     Route: 065
     Dates: start: 20210215

REACTIONS (26)
  - Urinary retention [Unknown]
  - Peripheral swelling [Unknown]
  - Paraesthesia [Unknown]
  - Sneezing [Unknown]
  - Stomatitis [Unknown]
  - Bladder disorder [Unknown]
  - Urine odour abnormal [Unknown]
  - Joint swelling [Unknown]
  - Vulvovaginal swelling [Unknown]
  - Asthma [Unknown]
  - Nasal congestion [Unknown]
  - Lacrimation increased [Unknown]
  - Ear pain [Unknown]
  - Pain in extremity [Unknown]
  - Facial pain [Unknown]
  - Upper-airway cough syndrome [Unknown]
  - Oropharyngeal pain [Unknown]
  - Rhinorrhoea [Unknown]
  - Cough [Unknown]
  - Hypertension [Unknown]
  - Fatigue [Unknown]
  - Erythema [Unknown]
  - Lip swelling [Unknown]
  - Rash erythematous [Unknown]
  - Rash pruritic [Unknown]
  - Headache [Unknown]
